FAERS Safety Report 20469038 (Version 5)
Quarter: 2022Q3

REPORT INFORMATION
  Report Type: Spontaneous
  Country: JP (occurrence: JP)
  Receive Date: 20220214
  Receipt Date: 20220714
  Transmission Date: 20221026
  Serious: Yes (Other)
  Sender: FDA-Public Use
  Company Number: JP-GSKNCCC-Case-01417915_AE-54680

PATIENT

DRUGS (15)
  1. SOTROVIMAB [Suspect]
     Active Substance: SOTROVIMAB
     Dosage: 500 MG/100 ML/30 MIN
     Dates: start: 20220128, end: 20220128
  2. ACETAMINOPHEN [Concomitant]
     Active Substance: ACETAMINOPHEN
     Indication: Pyrexia
     Dosage: 300 MG
     Route: 048
     Dates: start: 20220123, end: 20220123
  3. ACETAMINOPHEN [Concomitant]
     Active Substance: ACETAMINOPHEN
     Dosage: 300 MG
     Route: 048
     Dates: start: 20220125, end: 20220125
  4. ACETAMINOPHEN [Concomitant]
     Active Substance: ACETAMINOPHEN
     Dosage: 300 MG
     Route: 048
     Dates: start: 20220127, end: 20220127
  5. ISOTONIC SODIUM CHLORIDE SOLUTION [Concomitant]
     Active Substance: SODIUM CHLORIDE
     Dosage: 100 ML PER DAY
     Dates: start: 20220128, end: 20220128
  6. PHENYTOIN [Concomitant]
     Active Substance: PHENYTOIN
     Dosage: 2 DF, BID, AFTER BREAKFAST AND DINNER
  7. E KEPPRA TABLETS [Concomitant]
     Dosage: 1000 MG, BID, AFTER BREAKFAST AND DINNER
  8. OLANZAPINE [Concomitant]
     Active Substance: OLANZAPINE
     Dosage: 20 MG, QD, BEFORE SLEEP
  9. MAGNESIUM OXIDE [Concomitant]
     Active Substance: MAGNESIUM OXIDE
     Dosage: 1000 MG, TID, AFTER EACH MEAL
  10. SODIUM VALPROATE SR [Concomitant]
     Dosage: 200 MG, AFTER EACH MEAL, 400 MG, BEFORE SLEEP, QID
  11. FLUNITRAZEPAM [Concomitant]
     Active Substance: FLUNITRAZEPAM
     Dosage: 2 MG, QD, BEFORE SLEEP
  12. EDOXABAN TOSYLATE [Concomitant]
     Active Substance: EDOXABAN TOSYLATE
     Dosage: 30 MG, QD, AFTER BREAKFAST
  13. LEVOMEPROMAZINE [Concomitant]
     Active Substance: LEVOMEPROMAZINE
     Dosage: 25 MG, QID, AFTER EACH MEAL, BEFORE SLEEP
  14. FAMOTIDINE [Concomitant]
     Active Substance: FAMOTIDINE
     Dosage: 20 MG, BID, AFTER BREAKFAST AND DINNER
  15. PURSENNID TABLETS [Concomitant]
     Dosage: 2 DF
     Dates: start: 20220125, end: 20220125

REACTIONS (1)
  - Hypothermia [Recovered/Resolved]

NARRATIVE: CASE EVENT DATE: 20220101
